FAERS Safety Report 12615558 (Version 1)
Quarter: 2016Q3

REPORT INFORMATION
  Report Type: Spontaneous
  Country: SA (occurrence: SA)
  Receive Date: 20160802
  Receipt Date: 20160802
  Transmission Date: 20161109
  Serious: Yes (Other)
  Sender: FDA-Public Use
  Company Number: SA-BAYER-2016-145882

PATIENT
  Age: 30 Year
  Sex: Male

DRUGS (17)
  1. MOXIFLOXACIN ORAL [Suspect]
     Active Substance: MOXIFLOXACIN
     Indication: TUBERCULOSIS
     Dosage: UNK
     Dates: start: 200611
  2. MOXIFLOXACIN ORAL [Suspect]
     Active Substance: MOXIFLOXACIN
     Indication: TUBERCULOSIS
     Dosage: UNK
  3. ETHAMBUTOL [Concomitant]
     Active Substance: ETHAMBUTOL HYDROCHLORIDE
     Indication: LUNG DISORDER
     Dosage: UNK
     Dates: start: 200808
  4. PYRAZINAMIDE. [Concomitant]
     Active Substance: PYRAZINAMIDE
     Indication: LUNG DISORDER
     Dosage: UNK
     Dates: start: 200611, end: 200704
  5. CYCLOSERINE. [Concomitant]
     Active Substance: CYCLOSERINE
     Dosage: UNK
  6. MOXIFLOXACIN ORAL [Suspect]
     Active Substance: MOXIFLOXACIN
     Indication: TUBERCULOSIS
     Dosage: EVERY OTHER DAY
  7. MOXIFLOXACIN ORAL [Suspect]
     Active Substance: MOXIFLOXACIN
     Indication: TUBERCULOSIS
     Dosage: UNK
     Dates: end: 201103
  8. ISONIAZID. [Concomitant]
     Active Substance: ISONIAZID
     Indication: LUNG DISORDER
     Dosage: UNK
     Dates: start: 200611, end: 200704
  9. ISONIAZID. [Concomitant]
     Active Substance: ISONIAZID
     Indication: LUNG DISORDER
     Dosage: UNK
  10. RIFAMPIN. [Concomitant]
     Active Substance: RIFAMPIN
     Indication: LUNG DISORDER
     Dosage: UNK
     Dates: start: 200611, end: 200704
  11. PYRAZINAMIDE. [Concomitant]
     Active Substance: PYRAZINAMIDE
     Indication: LUNG DISORDER
     Dosage: UNK
  12. ETHAMBUTOL [Concomitant]
     Active Substance: ETHAMBUTOL HYDROCHLORIDE
     Indication: LUNG DISORDER
     Dosage: UNK
     Dates: start: 200611, end: 200704
  13. ETHAMBUTOL [Concomitant]
     Active Substance: ETHAMBUTOL HYDROCHLORIDE
     Indication: LUNG DISORDER
     Dosage: UNK
  14. CYCLOSERINE. [Concomitant]
     Active Substance: CYCLOSERINE
  15. MOXIFLOXACIN ORAL [Suspect]
     Active Substance: MOXIFLOXACIN
     Indication: TUBERCULOSIS
     Dosage: UNK
     Dates: start: 200808
  16. RIFAMPIN. [Concomitant]
     Active Substance: RIFAMPIN
     Indication: LUNG DISORDER
     Dosage: UNK
  17. AMIKACIN [Concomitant]
     Active Substance: AMIKACIN

REACTIONS (3)
  - Pathogen resistance [None]
  - Bone tuberculosis [None]
  - Drug ineffective for unapproved indication [None]
